FAERS Safety Report 16937505 (Version 1)
Quarter: 2019Q4

REPORT INFORMATION
  Report Type: Other
  Country: CA (occurrence: CA)
  Receive Date: 20191018
  Receipt Date: 20191018
  Transmission Date: 20200122
  Serious: No
  Sender: FDA-Public Use
  Company Number: CA-TOLMAR, INC.-19CA000534

PATIENT
  Age: 72 Year
  Sex: Male

DRUGS (1)
  1. ELIGARD [Suspect]
     Active Substance: LEUPROLIDE ACETATE
     Indication: PROSTATE CANCER
     Dosage: 30 MILLIGRAM, EVERY 4 MONTHS
     Route: 058
     Dates: start: 20171006

REACTIONS (4)
  - Fatigue [Unknown]
  - Osteolysis [Unknown]
  - Weight decreased [Unknown]
  - Decreased appetite [Unknown]
